FAERS Safety Report 6944831-2 (Version None)
Quarter: 2010Q3

REPORT INFORMATION
  Report Type: 
  Country: None (occurrence: None)
  Receive Date: 20100827
  Receipt Date: 20100817
  Transmission Date: 20110219
  Serious: Yes (Hospitalization)
  Sender: FDA-Public Use
  Company Number: JP-PFIZER INC-2010082675

PATIENT
  Age: 52 Year
  Sex: Female

DRUGS (5)
  1. ADRIACIN [Suspect]
     Indication: BREAST CANCER
     Dosage: 85 MG IJ
     Dates: start: 20100315, end: 20100705
  2. TAXOTERE [Suspect]
     Indication: BREAST CANCER
     Dosage: 128 MG IJ
     Dates: start: 20100315, end: 20100705
  3. ENDOXAN [Suspect]
     Indication: BREAST CANCER
     Dosage: 855 MG IJ
     Dates: start: 20100315, end: 20100705
  4. FAMOTIDINE [Concomitant]
     Dosage: 20 MG, 2X/DAY
     Route: 048
     Dates: start: 20100326
  5. MUCOSTA [Concomitant]
     Dosage: 100 MG, 3X/DAY
     Route: 048
     Dates: start: 20100326

REACTIONS (1)
  - UPPER RESPIRATORY TRACT INFLAMMATION [None]
